FAERS Safety Report 8765276 (Version 1)
Quarter: 2012Q4

REPORT INFORMATION
  Report Type: 
  Country: US (occurrence: US)
  Receive Date: 20120831
  Receipt Date: 20120831
  Transmission Date: 20130627
  Serious: Yes (Hospitalization, Other)
  Sender: FDA-Public Use
  Company Number: US-ROXANE LABORATORIES, INC.-2012-RO-01759RO

PATIENT
  Age: 27 Year
  Sex: Male

DRUGS (7)
  1. CYCLOPHOSPHAMIDE TABLETS USP [Suspect]
     Indication: CHRONIC LYMPHOCYTIC LEUKAEMIA
  2. RITUXIMAB [Suspect]
     Indication: CHRONIC LYMPHOCYTIC LEUKAEMIA
  3. FLUDARABINE [Suspect]
     Indication: CHRONIC LYMPHOCYTIC LEUKAEMIA
  4. CORTICOSTEROIDS [Suspect]
     Indication: CHRONIC LYMPHOCYTIC LEUKAEMIA
  5. DOXORUBICIN [Suspect]
     Indication: CHRONIC LYMPHOCYTIC LEUKAEMIA
  6. ETOPOSIDE [Suspect]
     Indication: CHRONIC LYMPHOCYTIC LEUKAEMIA
  7. CYCLOSPORINE [Suspect]
     Indication: CHRONIC LYMPHOCYTIC LEUKAEMIA

REACTIONS (8)
  - Adenovirus infection [Recovered/Resolved]
  - Tubulointerstitial nephritis [Recovered/Resolved]
  - Leukaemia recurrent [Recovered/Resolved]
  - Engraftment syndrome [Unknown]
  - Renal failure acute [Recovered/Resolved]
  - Cystitis haemorrhagic [Unknown]
  - Toxicity to various agents [Unknown]
  - Thrombocytopenia [Unknown]
